FAERS Safety Report 6390794-0 (Version None)
Quarter: 2009Q4

REPORT INFORMATION
  Report Type: 
  Country: None (occurrence: None)
  Receive Date: 20091001
  Receipt Date: 20090813
  Transmission Date: 20100525
  Serious: No
  Sender: FDA-Public Use
  Company Number: 1000008211

PATIENT
  Age: 55 Year
  Sex: Male

DRUGS (1)
  1. BYSTOLIC [Suspect]

REACTIONS (1)
  - ERECTILE DYSFUNCTION [None]
